FAERS Safety Report 20517870 (Version 2)
Quarter: 2022Q1

REPORT INFORMATION
  Report Type: Report from Study
  Country: DE (occurrence: DE)
  Receive Date: 20220225
  Receipt Date: 20220309
  Transmission Date: 20220423
  Serious: Yes (Hospitalization, Other)
  Sender: FDA-Public Use
  Company Number: DE-ABBVIE-22K-062-4292265-00

PATIENT
  Age: 61 Year
  Sex: Male

DRUGS (13)
  1. SKYRIZI [Suspect]
     Active Substance: RISANKIZUMAB-RZAA
     Indication: Psoriasis
     Route: 058
     Dates: start: 20201203, end: 20201229
  2. SKYRIZI [Suspect]
     Active Substance: RISANKIZUMAB-RZAA
     Route: 058
     Dates: start: 20210323
  3. ENSTILAR [Concomitant]
     Active Substance: BETAMETHASONE DIPROPIONATE\CALCIPOTRIENE HYDRATE
     Indication: Psoriasis
     Dosage: 1 APPLICATION SPRAY
     Route: 061
     Dates: start: 20200910
  4. AC7 KOMPLEX [Concomitant]
     Indication: Nutritional supplementation
     Route: 048
     Dates: start: 20201118
  5. NYSTATIN [Concomitant]
     Active Substance: NYSTATIN
     Indication: Frequent bowel movements
     Dosage: DRAGEES, 50000 IU (INTERNATIONAL UNIT)/2-2-2
     Route: 048
     Dates: start: 20201118
  6. MULTILIND [Concomitant]
     Indication: Intertrigo
     Dosage: 1 APPLICATION
     Route: 061
     Dates: start: 20201211, end: 20201231
  7. CURATODERM [Concomitant]
     Indication: Psoriasis
     Dosage: 1 APPLICATION
     Route: 061
     Dates: start: 20210323, end: 20210407
  8. CANDIO HERMAL [Concomitant]
     Indication: Intertrigo
     Dosage: 1 APPLICATION
     Route: 061
     Dates: start: 20201229, end: 20201231
  9. ESCHERICHIA COLI [Concomitant]
     Active Substance: ESCHERICHIA COLI
     Indication: Frequent bowel movements
     Route: 048
     Dates: start: 20210303, end: 20210531
  10. ITRACONAZOLE [Concomitant]
     Active Substance: ITRACONAZOLE
     Indication: Gastrointestinal candidiasis
     Route: 048
     Dates: start: 20210714, end: 20210811
  11. DEXAMETHASONE SODIUM PHOSPHATE [Concomitant]
     Active Substance: DEXAMETHASONE SODIUM PHOSPHATE
     Indication: Post procedural complication
     Dosage: EYE DROP 1MG/ML, 1 DROP
     Route: 057
     Dates: start: 20211104
  12. OMNI BIOTIC AB 10 [Concomitant]
     Indication: Dysbiosis
     Route: 048
     Dates: start: 20211027
  13. CURATODERM [Concomitant]
     Indication: Psoriasis
     Dosage: 1 APPLICATION, EMULSION
     Route: 061
     Dates: start: 20211130

REACTIONS (3)
  - Pain [Recovered/Resolved]
  - Umbilical hernia [Unknown]
  - Peritoneal adhesions [Unknown]

NARRATIVE: CASE EVENT DATE: 20220211
